FAERS Safety Report 13520683 (Version 1)
Quarter: 2017Q2

REPORT INFORMATION
  Report Type: Spontaneous
  Country: US (occurrence: US)
  Receive Date: 20170508
  Receipt Date: 20170508
  Transmission Date: 20170830
  Serious: Yes (Hospitalization, Other)
  Sender: FDA-Public Use
  Company Number: US-AMGEN-USASP2017068572

PATIENT
  Age: 74 Year
  Sex: Female

DRUGS (7)
  1. PROLIA [Suspect]
     Active Substance: DENOSUMAB
     Indication: OSTEOPOROSIS POSTMENOPAUSAL
     Dosage: UNK
     Route: 065
  2. NEORAL [Concomitant]
     Active Substance: CYCLOSPORINE
  3. CRESTOR [Concomitant]
     Active Substance: ROSUVASTATIN CALCIUM
  4. ULORIC [Concomitant]
     Active Substance: FEBUXOSTAT
  5. PREDNISONE. [Concomitant]
     Active Substance: PREDNISONE
     Dosage: 3 MG, QD
  6. DOXYCYCLINE. [Concomitant]
     Active Substance: DOXYCYCLINE
  7. SAVAYSA [Concomitant]
     Active Substance: EDOXABAN TOSYLATE

REACTIONS (2)
  - Pemphigoid [Unknown]
  - Hospitalisation [Unknown]
